FAERS Safety Report 4497743-0 (Version None)
Quarter: 2004Q4

REPORT INFORMATION
  Report Type: 
  Country: None (occurrence: None)
  Receive Date: 20041110
  Receipt Date: 20041103
  Transmission Date: 20050328
  Serious: Yes (Hospitalization, Other)
  Sender: FDA-Public Use
  Company Number: FR-BRISTOL-MYERS SQUIBB COMPANY-12755419

PATIENT
  Age: 53 Year
  Sex: Male
  Weight: 60 kg

DRUGS (14)
  1. SUSTIVA [Suspect]
     Indication: HIV INFECTION
     Route: 048
     Dates: start: 20010101, end: 20040814
  2. RETROVIR [Suspect]
     Indication: HIV INFECTION
     Route: 048
     Dates: start: 20010101, end: 20040814
  3. ZIAGEN [Suspect]
     Indication: HIV INFECTION
     Route: 048
     Dates: start: 20010101, end: 20040814
  4. ZERIT [Concomitant]
     Indication: HIV INFECTION
     Dates: start: 19970101, end: 20010101
  5. HEPSERA [Concomitant]
     Dates: start: 20030812, end: 20040712
  6. EPIVIR [Concomitant]
     Indication: HEPATITIS B
     Dates: start: 19970101, end: 20030101
  7. RETROVIR [Concomitant]
     Dosage: INTERRUPTED IN 1994
     Dates: start: 19890101
  8. TRIATEC [Concomitant]
     Indication: HYPERTENSION
     Dosage: DOSAGE CHANGED TO 2.5 MG
     Dates: start: 20030801
  9. AMLOR [Concomitant]
     Indication: HYPERTENSION
     Dates: start: 20030801
  10. SECTRAL [Concomitant]
     Indication: HYPERTENSION
     Dosage: DOSAGE CHANGED TO 600 MG/DAY.
     Dates: start: 20030801
  11. INTERFERON ALPHA [Concomitant]
     Indication: HEPATITIS C
     Dates: start: 19990101, end: 20000101
  12. RIBAVIRIN [Concomitant]
     Indication: HEPATITIS C
     Dates: start: 19990101, end: 20000101
  13. L-CARNITINE [Concomitant]
  14. POLYVITAMIN [Concomitant]

REACTIONS (6)
  - ENCEPHALITIS [None]
  - GENERAL PHYSICAL HEALTH DETERIORATION [None]
  - NEUROPATHY PERIPHERAL [None]
  - RENAL DISORDER [None]
  - TACHYCARDIA [None]
  - VOMITING [None]
